FAERS Safety Report 16609097 (Version 1)
Quarter: 2019Q3

REPORT INFORMATION
  Report Type: Spontaneous
  Country: US (occurrence: US)
  Receive Date: 20190720
  Receipt Date: 20190720
  Transmission Date: 20191004
  Serious: Yes (Disabling)
  Sender: FDA-Public Use
  Company Number: None

PATIENT
  Age: 51 Year
  Sex: Female
  Weight: 67.5 kg

DRUGS (1)
  1. CIPROFLOXACIN 500MG TABLETS [Suspect]
     Active Substance: CIPROFLOXACIN
     Indication: DIARRHOEA INFECTIOUS
     Dosage: ?          QUANTITY:6 TABLET(S);?
     Route: 048
     Dates: start: 20190612, end: 20190715

REACTIONS (11)
  - Back disorder [None]
  - Sciatica [None]
  - Arthralgia [None]
  - Muscular weakness [None]
  - Insomnia [None]
  - Groin pain [None]
  - Pain in extremity [None]
  - Cystitis [None]
  - Musculoskeletal disorder [None]
  - Fatigue [None]
  - Gait disturbance [None]

NARRATIVE: CASE EVENT DATE: 20190619
